FAERS Safety Report 8971348 (Version 1)
Quarter: 2012Q4

REPORT INFORMATION
  Report Type: 
  Country: IT (occurrence: IT)
  Receive Date: 20121218
  Receipt Date: 20121218
  Transmission Date: 20130627
  Serious: Yes (Other)
  Sender: FDA-Public Use
  Company Number: IT-ROCHE-1167448

PATIENT
  Age: 42 Year
  Sex: Male

DRUGS (7)
  1. RIBAVIRIN [Suspect]
     Indication: CHRONIC HEPATITIS C
     Route: 065
     Dates: start: 2002
  2. RIBAVIRIN [Suspect]
     Route: 065
     Dates: start: 2004
  3. RIBAVIRIN [Suspect]
     Route: 065
  4. RIBAVIRIN [Suspect]
     Route: 065
     Dates: start: 201003
  5. PEG-INTERFERON ALFA 2A [Suspect]
     Indication: CHRONIC HEPATITIS C
     Route: 065
     Dates: start: 2004
  6. PEG-INTERFERON ALFA 2A [Suspect]
     Route: 065
     Dates: start: 201203
  7. INSULIN [Concomitant]
     Route: 065

REACTIONS (2)
  - Acquired porphyria [Unknown]
  - Anaemia [Unknown]
